FAERS Safety Report 9738560 (Version 2)
Quarter: 2013Q4

REPORT INFORMATION
  Report Type: Report from Study
  Country: JP (occurrence: JP)
  Receive Date: 20131209
  Receipt Date: 20131209
  Transmission Date: 20140711
  Serious: Yes (Death, Hospitalization, Other)
  Sender: FDA-Public Use
  Company Number: JP-009507513-2008SP008832

PATIENT
  Age: 66 Year
  Sex: Male
  Weight: 54 kg

DRUGS (22)
  1. TEMOZOLOMIDE [Suspect]
     Indication: GLIOBLASTOMA MULTIFORME
     Dosage: DAILY DOSE UNKNOWN
     Route: 048
     Dates: start: 20060725, end: 20061022
  2. TEMOZOLOMIDE [Suspect]
     Dosage: 150 MG/M2, QD
     Route: 048
     Dates: start: 20061117, end: 20061121
  3. TEMOZOLOMIDE [Suspect]
     Dosage: 150 MG/M2, QD
     Route: 048
     Dates: start: 20061214, end: 20061218
  4. PHENYTOIN [Concomitant]
     Dosage: DAILY DOSE UNKNOWN
     Route: 048
  5. PREDNISOLONE [Concomitant]
     Dosage: DAILY DOSE UNKNOWN
     Route: 048
  6. MAGNESIUM OXIDE [Concomitant]
     Dosage: DAILY DOSE UNKNOWN
     Route: 048
  7. METHYCOBAL [Concomitant]
     Dosage: DAILY DOSE UNKNOWN
     Route: 048
     Dates: end: 20070118
  8. GASTER D [Concomitant]
     Indication: PROPHYLAXIS
     Dosage: DAILY DOSE UNKNOWN
     Route: 048
  9. GASTER (FAMOTIDINE) [Concomitant]
     Indication: PROPHYLAXIS
     Dosage: DAILY DOSE UNKNOWN
     Route: 041
  10. ISOBIDE [Concomitant]
     Dosage: DAILY DOSE UNKNOWN
     Route: 048
  11. NAVOBAN [Concomitant]
     Indication: PROPHYLAXIS
     Dosage: DAILY DOSE UNKNOWN
     Route: 048
     Dates: start: 20061117, end: 20071218
  12. LAXOBERON [Concomitant]
     Indication: PROPHYLAXIS
     Dosage: DAILY DOSE UNKNOWN
     Route: 048
     Dates: start: 20061211
  13. FRUCTOSE (+) GLYCERIN (+) SODIUM CHLORIDE [Concomitant]
     Dosage: DAILY DOSE UNKNOWN
     Route: 041
     Dates: start: 20061123, end: 20070206
  14. RINDERON (BETAMETHASONE SODIUM PHOSPHATE) [Concomitant]
     Indication: PROPHYLAXIS
     Dosage: DAILY DOSE UNKNOWN
     Route: 041
     Dates: start: 20061221, end: 20070101
  15. VITAMEDIN INTRAVENOUS [Concomitant]
     Indication: PROPHYLAXIS
     Dosage: DAILY DOSE UNKNOWN
     Route: 041
     Dates: start: 20061221, end: 20070101
  16. GLYCYRON [Concomitant]
     Dosage: DAILY DOSAGE UNKNOWN
     Route: 048
     Dates: end: 20061210
  17. URSO [Concomitant]
     Dosage: DAILY DOSAGE UNKNOWN
     Route: 048
     Dates: start: 20070126
  18. NEO-MINOPHAGEN C [Concomitant]
     Dosage: DAILY DOSAGE UNKNOWN
     Route: 041
     Dates: start: 20070115, end: 20070206
  19. TATHION [Concomitant]
     Dosage: DAILY DOSAGE UNKNOWN
     Route: 041
     Dates: start: 20070115, end: 20070206
  20. AMINOFLUID [Concomitant]
     Dosage: DAILY DOSAGE UNKNOWN
     Route: 041
     Dates: start: 20070107, end: 20070206
  21. CEFMETAZON [Concomitant]
     Dosage: DAILY DOSAGE UNKNOWN
     Route: 041
     Dates: start: 20070115, end: 20070123
  22. ADELAVIN (FLAVIN ADENINE DINUCLEOTIDE (+) LIVER EXTRACT) [Concomitant]
     Dosage: DAILY DOSAGE UNKNOWN
     Route: 041
     Dates: start: 20070115, end: 20070206

REACTIONS (14)
  - Gamma-glutamyltransferase increased [Not Recovered/Not Resolved]
  - Disease progression [Fatal]
  - Hepatic function abnormal [Recovering/Resolving]
  - Electrolyte imbalance [Recovered/Resolved]
  - Dehydration [Not Recovered/Not Resolved]
  - Electrolyte imbalance [Not Recovered/Not Resolved]
  - Anaemia [Not Recovered/Not Resolved]
  - Lymphocyte count decreased [Not Recovered/Not Resolved]
  - Blood urea increased [Recovered/Resolved]
  - Asthenia [Recovered/Resolved]
  - White blood cell count increased [Recovered/Resolved]
  - C-reactive protein increased [Recovered/Resolved]
  - White blood cell count increased [Recovered/Resolved]
  - C-reactive protein increased [Recovered/Resolved]
